FAERS Safety Report 14945409 (Version 1)
Quarter: 2018Q2

REPORT INFORMATION
  Report Type: Spontaneous
  Country: US (occurrence: US)
  Receive Date: 20180529
  Receipt Date: 20180529
  Transmission Date: 20180711
  Serious: No
  Sender: FDA-Public Use
  Company Number: US-BIODELIVERY SCIENCES INTERNATIONAL-2017BDSI0120

PATIENT
  Sex: Female
  Weight: 59.02 kg

DRUGS (8)
  1. BUPRENORPHINE. [Suspect]
     Active Substance: BUPRENORPHINE
     Indication: PAIN
     Route: 002
     Dates: start: 201608, end: 201702
  2. PREGABALIN. [Concomitant]
     Active Substance: PREGABALIN
     Indication: FIBROMYALGIA
  3. TOPIRAMATE. [Concomitant]
     Active Substance: TOPIRAMATE
     Indication: MIGRAINE
  4. PENTOSAN POLYSULFATE SODIUM [Concomitant]
     Active Substance: PENTOSAN POLYSULFATE SODIUM
     Indication: CYSTITIS INTERSTITIAL
  5. BUPRENORPHINE. [Suspect]
     Active Substance: BUPRENORPHINE
     Route: 002
     Dates: start: 201702
  6. SULFAMETHOXAZOLE/TRIMETHOPRIM [Concomitant]
     Indication: ACNE CYSTIC
  7. SPIRONOLACTONE. [Concomitant]
     Active Substance: SPIRONOLACTONE
     Indication: ACNE
  8. TAMSULOSIN HYDROCHLORIDE. [Concomitant]
     Active Substance: TAMSULOSIN HYDROCHLORIDE
     Indication: URINE FLOW DECREASED

REACTIONS (7)
  - Product adhesion issue [Recovered/Resolved]
  - Inappropriate schedule of drug administration [Not Recovered/Not Resolved]
  - Cystitis interstitial [Not Recovered/Not Resolved]
  - Incorrect route of drug administration [Recovered/Resolved]
  - Asthenia [Not Recovered/Not Resolved]
  - Drug screen negative [Unknown]
  - Limb injury [Recovered/Resolved]

NARRATIVE: CASE EVENT DATE: 2016
